FAERS Safety Report 6470112-X (Version None)
Quarter: 2009Q4

REPORT INFORMATION
  Report Type: 
  Country: None (occurrence: None)
  Receive Date: 20091203
  Receipt Date: 20091126
  Transmission Date: 20100525
  Serious: Yes (Other)
  Sender: FDA-Public Use
  Company Number: AU-ABBOTT-09P-008-0571837-00

PATIENT
  Sex: Female

DRUGS (1)
  1. HUMIRA [Suspect]
     Indication: PSORIASIS
     Dates: end: 20090501

REACTIONS (8)
  - ANGIOTENSIN CONVERTING ENZYME INCREASED [None]
  - ARTHRITIS [None]
  - COMPUTERISED TOMOGRAM ABNORMAL [None]
  - CUTANEOUS SARCOIDOSIS [None]
  - HILAR LYMPHADENOPATHY [None]
  - LYMPHADENOPATHY MEDIASTINAL [None]
  - PSORIASIS [None]
  - SARCOIDOSIS [None]
